FAERS Safety Report 10178268 (Version 1)
Quarter: 2014Q2

REPORT INFORMATION
  Report Type: Spontaneous
  Country: JP (occurrence: JP)
  Receive Date: 20140519
  Receipt Date: 20140519
  Transmission Date: 20141212
  Serious: Yes (Death)
  Sender: FDA-Public Use
  Company Number: PHHY2014JP059207

PATIENT
  Sex: 0

DRUGS (2)
  1. DESFERAL [Suspect]
     Indication: HAEMOSIDEROSIS
     Dosage: 1000 MG, DAILY
     Route: 030
     Dates: start: 20140421, end: 20140421
  2. DESFERAL [Suspect]
     Dosage: 500 MG, DAILY (DOSE DECREASED)
     Route: 030
     Dates: start: 20140422

REACTIONS (1)
  - Disease progression [Fatal]
